FAERS Safety Report 10991415 (Version 1)
Quarter: 2015Q2

REPORT INFORMATION
  Report Type: Report from Study
  Country: JP (occurrence: JP)
  Receive Date: 20150406
  Receipt Date: 20150406
  Transmission Date: 20150821
  Serious: Yes (Hospitalization)
  Sender: FDA-Public Use
  Company Number: JP-EISAI MEDICAL RESEARCH-EC-2015-005666

PATIENT
  Age: 83 Year
  Sex: Female

DRUGS (6)
  1. ARICEPT [Suspect]
     Active Substance: DONEPEZIL HYDROCHLORIDE
     Route: 048
     Dates: start: 20140217, end: 20140303
  2. BAYASPIRIN [Concomitant]
     Active Substance: ASPIRIN
  3. ALDACTONE [Concomitant]
     Active Substance: SPIRONOLACTONE
  4. ARICEPT [Suspect]
     Active Substance: DONEPEZIL HYDROCHLORIDE
     Indication: DEMENTIA ALZHEIMER^S TYPE
     Route: 048
     Dates: start: 20140203, end: 20140216
  5. HALFDIGOXIN [Concomitant]
     Active Substance: DIGOXIN
  6. YOKUKANSANKACHIMPIH [Concomitant]

REACTIONS (1)
  - Decreased appetite [Not Recovered/Not Resolved]

NARRATIVE: CASE EVENT DATE: 20140303
